FAERS Safety Report 4724330-9 (Version None)
Quarter: 2005Q3

REPORT INFORMATION
  Report Type: 
  Country: None (occurrence: None)
  Receive Date: 20050720
  Receipt Date: 20050720
  Transmission Date: 20060218
  Serious: No
  Sender: FDA-Public Use
  Company Number: None

PATIENT
  Sex: Female
  Weight: 119.296 kg

DRUGS (1)
  1. LEVOTHYROXINE [Suspect]
     Indication: THYROID GLAND CANCER

REACTIONS (1)
  - DRUG LEVEL CHANGED [None]
